FAERS Safety Report 10850400 (Version 1)
Quarter: 2015Q1

REPORT INFORMATION
  Report Type: Spontaneous
  Country: US (occurrence: US)
  Receive Date: 20150222
  Receipt Date: 20150222
  Transmission Date: 20150721
  Serious: No
  Sender: FDA-Public Use
  Company Number: US-ALLERGAN-1420593US

PATIENT
  Age: 88 Year
  Sex: Male

DRUGS (4)
  1. OZURDEX [Suspect]
     Active Substance: DEXAMETHASONE
     Indication: RETINAL VEIN OCCLUSION
     Dosage: 0.7 MG, UNK
     Route: 031
     Dates: start: 201407, end: 201407
  2. METOPROLOL [Concomitant]
     Active Substance: METOPROLOL
     Indication: HYPERTENSION
     Dosage: UNK
  3. OZURDEX [Suspect]
     Active Substance: DEXAMETHASONE
     Dosage: 0.7 MG, UNK
     Route: 031
     Dates: start: 201311, end: 201311
  4. LUCENTIS [Suspect]
     Active Substance: RANIBIZUMAB
     Indication: RETINAL VEIN OCCLUSION
     Dosage: UNK, SINGLE
     Dates: start: 201409, end: 201409

REACTIONS (6)
  - Photophobia [Recovering/Resolving]
  - Visual impairment [Recovering/Resolving]
  - Photopsia [Recovering/Resolving]
  - Glaucoma [Unknown]
  - Photosensitivity reaction [Not Recovered/Not Resolved]
  - Cataract [Unknown]
